FAERS Safety Report 9999644 (Version 1)
Quarter: 2014Q1

REPORT INFORMATION
  Report Type: Spontaneous
  Country: JP (occurrence: JP)
  Receive Date: 20140312
  Receipt Date: 20140312
  Transmission Date: 20141002
  Serious: Yes (Other)
  Sender: FDA-Public Use
  Company Number: JP-SA-2014SA029534

PATIENT
  Age: 66 Year
  Sex: Female

DRUGS (1)
  1. BCG FOR IMMUNOTHERAPY [Suspect]
     Indication: BLADDER CANCER
     Route: 043

REACTIONS (3)
  - Reiter^s syndrome [Recovering/Resolving]
  - Neck pain [Recovering/Resolving]
  - Acute haemorrhagic conjunctivitis [Recovering/Resolving]
